FAERS Safety Report 7121603-X (Version None)
Quarter: 2010Q4

REPORT INFORMATION
  Report Type: 
  Country: None (occurrence: None)
  Receive Date: 20101124
  Receipt Date: 20101112
  Transmission Date: 20110411
  Serious: Yes (Hospitalization)
  Sender: FDA-Public Use
  Company Number: US-ELI_LILLY_AND_COMPANY-US201004004129

PATIENT
  Sex: Female

DRUGS (3)
  1. FORTEO [Suspect]
     Indication: OSTEOPOROSIS
     Dosage: 20 UG, DAILY (1/D)
     Route: 065
     Dates: start: 20100301
  2. CALCIUM                                 /N/A/ [Concomitant]
     Dosage: 1800 MG, DAILY (1/D)
     Dates: start: 20100101
  3. VITAMIN D [Concomitant]
     Dosage: 5000 IU, DAILY (1/D)
     Dates: start: 20100101

REACTIONS (8)
  - ABDOMINAL PAIN [None]
  - CYSTITIS [None]
  - DIVERTICULITIS [None]
  - DYSPEPSIA [None]
  - FATIGUE [None]
  - GASTROINTESTINAL INFECTION [None]
  - MALAISE [None]
  - VOMITING [None]
